FAERS Safety Report 6304619-2 (Version None)
Quarter: 2009Q3

REPORT INFORMATION
  Report Type: 
  Country: None (occurrence: None)
  Receive Date: 20090806
  Receipt Date: 20090724
  Transmission Date: 20100115
  Serious: Yes (Death)
  Sender: FDA-Public Use
  Company Number: 2009AL000415

PATIENT
  Sex: Male

DRUGS (1)
  1. DIGOXIN [Suspect]
     Dosage: PO
     Route: 048
     Dates: start: 20080201

REACTIONS (5)
  - CARDIO-RESPIRATORY ARREST [None]
  - ECONOMIC PROBLEM [None]
  - EMOTIONAL DISORDER [None]
  - MULTIPLE INJURIES [None]
  - PAIN [None]
